FAERS Safety Report 9670362 (Version 3)
Quarter: 2014Q1

REPORT INFORMATION
  Report Type: Spontaneous
  Country: US (occurrence: US)
  Receive Date: 20131105
  Receipt Date: 20140110
  Transmission Date: 20141002
  Serious: Yes (Other)
  Sender: FDA-Public Use
  Company Number: US-ALLERGAN-1317101US

PATIENT
  Age: 61 Year
  Sex: Female
  Weight: 77.98 kg

DRUGS (1)
  1. RESTASIS [Suspect]
     Indication: DRY EYE
     Dosage: 1 GTT, BID
     Route: 047
     Dates: start: 20130813, end: 20130905

REACTIONS (2)
  - Pharyngeal oedema [Recovered/Resolved]
  - Rash [Recovered/Resolved]
